FAERS Safety Report 6415172-7 (Version None)
Quarter: 2009Q4

REPORT INFORMATION
  Report Type: 
  Country: None (occurrence: None)
  Receive Date: 20091027
  Receipt Date: 20091016
  Transmission Date: 20100525
  Serious: Yes (Other)
  Sender: FDA-Public Use
  Company Number: CA-WYE-G04654709

PATIENT
  Sex: Male

DRUGS (1)
  1. TORISEL [Suspect]
     Dosage: UNKNOWN
     Route: 042

REACTIONS (3)
  - DRUG EFFECT DECREASED [None]
  - LUNG NEOPLASM [None]
  - NEOPLASM PROGRESSION [None]
